FAERS Safety Report 14435763 (Version 1)
Quarter: 2018Q1

REPORT INFORMATION
  Report Type: Spontaneous
  Country: US (occurrence: US)
  Receive Date: 20180124
  Receipt Date: 20180124
  Transmission Date: 20180509
  Serious: Yes (Hospitalization, Disabling, Other)
  Sender: FDA-Public Use
  Company Number: None

PATIENT
  Age: 47 Year
  Sex: Female
  Weight: 114.76 kg

DRUGS (5)
  1. MIRENA [Suspect]
     Active Substance: LEVONORGESTREL
     Dates: start: 20170714, end: 20171025
  2. IBUPROFEN. [Concomitant]
     Active Substance: IBUPROFEN
  3. FAMOTIDINE. [Concomitant]
     Active Substance: FAMOTIDINE
  4. NORCO [Concomitant]
     Active Substance: ACETAMINOPHEN\HYDROCODONE BITARTRATE
  5. ADVAIR HFA [Concomitant]
     Active Substance: FLUTICASONE PROPIONATE\SALMETEROL XINAFOATE

REACTIONS (7)
  - Menorrhagia [None]
  - Gait disturbance [None]
  - Headache [None]
  - Blood test abnormal [None]
  - Hypoaesthesia [None]
  - Paraesthesia [None]
  - Limb discomfort [None]

NARRATIVE: CASE EVENT DATE: 20170901
